FAERS Safety Report 10874501 (Version 1)
Quarter: 2015Q1

REPORT INFORMATION
  Report Type: Spontaneous
  Country: TR (occurrence: None)
  Receive Date: 20150224
  Receipt Date: 20150224
  Transmission Date: 20150721
  Serious: Yes (Hospitalization)
  Sender: FDA-Public Use
  Company Number: POI0573201500027

PATIENT
  Age: 32 Year
  Sex: Female

DRUGS (3)
  1. FLUOXETINE HYDROCHLORIDE. [Suspect]
     Active Substance: FLUOXETINE HYDROCHLORIDE
  2. ALPRAZOLAM. [Suspect]
     Active Substance: ALPRAZOLAM
  3. NIFEDIPINE EXTENDED-RELEASE TABLETS, USP [Suspect]
     Active Substance: NIFEDIPINE

REACTIONS (9)
  - Toxicity to various agents [None]
  - Hypotension [None]
  - Chromaturia [None]
  - Sinus bradycardia [None]
  - Chest pain [None]
  - Lung infiltration [None]
  - Neurological symptom [None]
  - Cough [None]
  - Coma scale abnormal [None]

NARRATIVE: CASE EVENT DATE: 201409
